FAERS Safety Report 5341754-X (Version None)
Quarter: 2007Q2

REPORT INFORMATION
  Report Type: 
  Country: None (occurrence: None)
  Receive Date: 20070529
  Receipt Date: 20070529
  Transmission Date: 20071010
  Serious: Yes (Death, Life-Threatening, Hospitalization, Congenital Anomaly)
  Sender: FDA-Public Use
  Company Number: None

PATIENT
  Age: 37 Year
  Sex: Female
  Weight: 65.7716 kg

DRUGS (1)
  1. EFFEXOR XR [Suspect]
     Indication: BIPOLAR I DISORDER
     Dosage: 150 MG 1 PER DAY PO
     Route: 048
     Dates: start: 20040312, end: 20070517

REACTIONS (19)
  - ABDOMINAL PAIN LOWER [None]
  - ABORTION SPONTANEOUS [None]
  - ANXIETY [None]
  - BREAST ENLARGEMENT [None]
  - BREAST TENDERNESS [None]
  - CARDIAC ARREST [None]
  - CERVIX DISORDER [None]
  - DRUG EXPOSURE DURING PREGNANCY [None]
  - DRUG WITHDRAWAL SYNDROME [None]
  - FOETAL DISORDER [None]
  - INSOMNIA [None]
  - INTRA-UTERINE DEATH [None]
  - NIGHTMARE [None]
  - PALPITATIONS [None]
  - PARAESTHESIA [None]
  - POST PROCEDURAL HAEMORRHAGE [None]
  - PREGNANCY [None]
  - VAGINAL HAEMORRHAGE [None]
  - VOMITING IN PREGNANCY [None]
